FAERS Safety Report 9054888 (Version 1)
Quarter: 2013Q1

REPORT INFORMATION
  Report Type: Spontaneous
  Country: IT (occurrence: IT)
  Receive Date: 20130208
  Receipt Date: 20130208
  Transmission Date: 20140127
  Serious: Yes (Hospitalization)
  Sender: FDA-Public Use
  Company Number: IT-BRISTOL-MYERS SQUIBB COMPANY-17341454

PATIENT
  Age: 40 Year
  Sex: Male

DRUGS (2)
  1. COUMADIN TABS 5 MG [Suspect]
     Dosage: 100MG TABS
     Route: 048
     Dates: start: 20130101, end: 20130131
  2. TENORMIN [Concomitant]
     Route: 048

REACTIONS (2)
  - Oedema peripheral [Unknown]
  - Skin warm [Unknown]
